FAERS Safety Report 6788387-6 (Version None)
Quarter: 2010Q2

REPORT INFORMATION
  Report Type: 
  Country: None (occurrence: None)
  Receive Date: 20100623
  Receipt Date: 20080304
  Transmission Date: 20101027
  Serious: Yes (Other)
  Sender: FDA-Public Use
  Company Number: US-PFIZER INC-2008021123

PATIENT
  Sex: Female
  Weight: 44.5 kg

DRUGS (11)
  1. XALATAN [Suspect]
     Indication: GLAUCOMA
     Dates: start: 20080111, end: 20080101
  2. SYNTHROID [Concomitant]
  3. ZETIA [Concomitant]
  4. ASACOL [Concomitant]
  5. FIBERCON [Concomitant]
  6. CITRACAL [Concomitant]
  7. MULTI-VITAMINS [Concomitant]
  8. ZYRTEC [Concomitant]
  9. MYLANTA [Concomitant]
  10. TUMS [Concomitant]
  11. NEXIUM [Concomitant]

REACTIONS (1)
  - DYSPNOEA [None]
